FAERS Safety Report 16856093 (Version 1)
Quarter: 2019Q3

REPORT INFORMATION
  Report Type: Spontaneous
  Country: FR (occurrence: FR)
  Receive Date: 20190926
  Receipt Date: 20190926
  Transmission Date: 20191005
  Serious: Yes (Life-Threatening)
  Sender: FDA-Public Use
  Company Number: FR-MYLANLABS-2019M1090153

PATIENT
  Age: 55 Year
  Sex: Female
  Weight: 68 kg

DRUGS (4)
  1. CISATRACURIUM. [Suspect]
     Active Substance: CISATRACURIUM
     Indication: NEUROMUSCULAR BLOCKING THERAPY
     Dosage: 8 MILLIGRAM
     Route: 042
     Dates: start: 20180306, end: 20180306
  2. PROPOFOL. [Suspect]
     Active Substance: PROPOFOL
     Indication: GENERAL ANAESTHESIA
     Dosage: 200 MILLIGRAM
     Route: 042
     Dates: start: 20180306, end: 20180306
  3. SUFENTANIL [Suspect]
     Active Substance: SUFENTANIL
     Indication: ANALGESIC THERAPY
     Dosage: 15 MICROGRAM
     Route: 042
     Dates: start: 20180306, end: 20180306
  4. DEXAMETHASONE. [Suspect]
     Active Substance: DEXAMETHASONE
     Indication: PRODUCT USED FOR UNKNOWN INDICATION
     Dosage: 8 MILLIGRAM
     Route: 042
     Dates: start: 20180306, end: 20180306

REACTIONS (1)
  - Anaphylactic shock [Recovered/Resolved]

NARRATIVE: CASE EVENT DATE: 20180306
